FAERS Safety Report 7597145-4 (Version None)
Quarter: 2011Q3

REPORT INFORMATION
  Report Type: 
  Country: None (occurrence: None)
  Receive Date: 20110708
  Receipt Date: 20100806
  Transmission Date: 20111222
  Serious: No
  Sender: FDA-Public Use
  Company Number: US-GLAXOSMITHKLINE-A0850457A

PATIENT
  Age: 62 Year
  Sex: Female

DRUGS (5)
  1. FLOVENT [Suspect]
     Indication: ASTHMA
     Dosage: 1PUFF TWICE PER DAY
     Route: 055
     Dates: start: 20040101, end: 20090101
  2. ATROVENT [Concomitant]
  3. VENTOLIN HFA [Suspect]
     Indication: ASTHMA
     Dosage: 1PUFF AS REQUIRED
     Route: 055
  4. SEREVENT [Suspect]
     Indication: ASTHMA
     Route: 055
     Dates: start: 19940101, end: 20040101
  5. PULMICORT [Concomitant]
     Route: 055

REACTIONS (3)
  - DRUG INEFFECTIVE [None]
  - DIZZINESS [None]
  - PRODUCT QUALITY ISSUE [None]
